FAERS Safety Report 21178451 (Version 1)
Quarter: 2022Q3

REPORT INFORMATION
  Report Type: Report from Study
  Country: FI (occurrence: None)
  Receive Date: 20220805
  Receipt Date: 20220805
  Transmission Date: 20221026
  Serious: Yes (Death, Hospitalization)
  Sender: FDA-Public Use
  Company Number: 2022A243771

PATIENT
  Age: 76 Year
  Sex: Female
  Weight: 75.1 kg

DRUGS (17)
  1. ALPELISIB [Suspect]
     Active Substance: ALPELISIB
     Indication: Ovarian cancer
     Route: 048
     Dates: start: 20220215
  2. OLAPARIB [Suspect]
     Active Substance: OLAPARIB
     Indication: Ovarian cancer
     Route: 048
     Dates: start: 20220215
  3. CEFUROXIME [Concomitant]
     Active Substance: CEFUROXIME
     Route: 065
     Dates: start: 20220621, end: 20220623
  4. KEFALEXIN [Concomitant]
     Route: 065
     Dates: start: 20220623, end: 20220627
  5. MAGNESIUM HYDROXIDE [Concomitant]
     Active Substance: MAGNESIUM HYDROXIDE
     Route: 065
     Dates: start: 202108
  6. PRIMPERAN [Concomitant]
     Active Substance: METOCLOPRAMIDE HYDROCHLORIDE
     Route: 065
     Dates: start: 20220218
  7. PANTOPRAZOLE SODIUM [Concomitant]
     Active Substance: PANTOPRAZOLE SODIUM
     Route: 065
  8. GAVISCON [Concomitant]
     Active Substance: ALUMINUM HYDROXIDE\MAGNESIUM CARBONATE
     Route: 065
  9. ONDANSETRON [Concomitant]
     Active Substance: ONDANSETRON
     Route: 065
  10. SANDOSTATIN [Concomitant]
     Active Substance: OCTREOTIDE ACETATE
  11. DEXACUR [Concomitant]
  12. MORPHIN (MORPHINE HYDROCHLORIDE) [Concomitant]
  13. LEVOTHYROXINE [Concomitant]
     Active Substance: LEVOTHYROXINE
  14. LIPITOR [Concomitant]
     Active Substance: ATORVASTATIN CALCIUM
  15. INNOHEP [Concomitant]
     Active Substance: TINZAPARIN SODIUM
  16. JANUVIA [Concomitant]
     Active Substance: SITAGLIPTIN PHOSPHATE
  17. JARDIANCE [Concomitant]
     Active Substance: EMPAGLIFLOZIN

REACTIONS (1)
  - Vomiting [Fatal]

NARRATIVE: CASE EVENT DATE: 20220628
